FAERS Safety Report 12240503 (Version 1)
Quarter: 2016Q2

REPORT INFORMATION
  Report Type: Other
  Country: US (occurrence: US)
  Receive Date: 20160405
  Receipt Date: 20160405
  Transmission Date: 20160815
  Serious: Yes (Other)
  Sender: FDA-Public Use
  Company Number: US-NAPPMUNDI-DEU-2016-0017832

PATIENT
  Age: 53 Year
  Sex: Male
  Weight: 111 kg

DRUGS (2)
  1. HYDROMORPHONE HCL (SIMILAR TO 19-892) [Suspect]
     Active Substance: HYDROMORPHONE HYDROCHLORIDE
     Indication: ANAESTHETIC PREMEDICATION
     Route: 065
  2. FENTANYL. [Suspect]
     Active Substance: FENTANYL
     Indication: ANAESTHETIC PREMEDICATION
     Route: 065

REACTIONS (3)
  - Delirium [Unknown]
  - Dysphoria [Unknown]
  - Agitation [Unknown]
